FAERS Safety Report 7759714-8 (Version None)
Quarter: 2011Q3

REPORT INFORMATION
  Report Type: 
  Country: None (occurrence: None)
  Receive Date: 20110915
  Receipt Date: 20110908
  Transmission Date: 20111222
  Serious: Yes (Hospitalization)
  Sender: FDA-Public Use
  Company Number: 2011SP042397

PATIENT
  Age: 42 Year
  Sex: Male

DRUGS (8)
  1. DOXEPIN HCL [Concomitant]
  2. VENTOLIN HFA [Concomitant]
  3. NEXIUM [Concomitant]
  4. FENTANYL [Concomitant]
  5. MIRTAZAPINE [Suspect]
     Indication: IRRITABILITY
     Dosage: 15 MG; 20 MG; 15MG
     Dates: start: 20110615
  6. MIRTAZAPINE [Suspect]
     Indication: SLEEP DISORDER
     Dosage: 15 MG; 20 MG; 15MG
     Dates: start: 20110615
  7. OXYCODONE HCL [Concomitant]
  8. VALPROATE SODIUM [Concomitant]

REACTIONS (3)
  - CHEST DISCOMFORT [None]
  - SKIN BURNING SENSATION [None]
  - LUNG DISORDER [None]
